FAERS Safety Report 23173618 (Version 17)
Quarter: 2025Q2

REPORT INFORMATION
  Report Type: Report from Study
  Country: CA (occurrence: CA)
  Receive Date: 20231111
  Receipt Date: 20250515
  Transmission Date: 20250716
  Serious: Yes (Hospitalization, Other)
  Sender: TAKEDA
  Company Number: CA-TAKEDA-2023TUS102790

PATIENT
  Age: 80 Year
  Sex: Male

DRUGS (36)
  1. HUMAN IMMUNOGLOBULIN G [Suspect]
     Active Substance: HUMAN IMMUNOGLOBULIN G
     Indication: Polymyositis
     Dosage: 22 GRAM, 1/WEEK
     Dates: start: 20231019
  2. HUMAN IMMUNOGLOBULIN G [Suspect]
     Active Substance: HUMAN IMMUNOGLOBULIN G
  3. HUMAN IMMUNOGLOBULIN G [Suspect]
     Active Substance: HUMAN IMMUNOGLOBULIN G
     Dosage: 22 GRAM, 1/WEEK
  4. HUMAN IMMUNOGLOBULIN G [Suspect]
     Active Substance: HUMAN IMMUNOGLOBULIN G
     Dosage: 22 GRAM, 1/WEEK
  5. HUMAN IMMUNOGLOBULIN G [Suspect]
     Active Substance: HUMAN IMMUNOGLOBULIN G
  6. HUMAN IMMUNOGLOBULIN G [Suspect]
     Active Substance: HUMAN IMMUNOGLOBULIN G
     Dosage: UNK UNK, 1/WEEK
  7. HUMAN IMMUNOGLOBULIN G [Suspect]
     Active Substance: HUMAN IMMUNOGLOBULIN G
     Dosage: 22 GRAM, 1/WEEK
  8. HUMAN IMMUNOGLOBULIN G [Suspect]
     Active Substance: HUMAN IMMUNOGLOBULIN G
     Dosage: 22 GRAM, 1/WEEK
  9. HUMAN IMMUNOGLOBULIN G [Suspect]
     Active Substance: HUMAN IMMUNOGLOBULIN G
     Dosage: 22 GRAM, 1/WEEK
  10. HUMAN IMMUNOGLOBULIN G [Suspect]
     Active Substance: HUMAN IMMUNOGLOBULIN G
     Dosage: 22 GRAM, 1/WEEK
  11. HUMAN IMMUNOGLOBULIN G [Suspect]
     Active Substance: HUMAN IMMUNOGLOBULIN G
     Dosage: 22 GRAM, 1/WEEK
  12. HUMAN IMMUNOGLOBULIN G [Suspect]
     Active Substance: HUMAN IMMUNOGLOBULIN G
     Dosage: 22 GRAM, 1/WEEK
  13. HUMAN IMMUNOGLOBULIN G [Suspect]
     Active Substance: HUMAN IMMUNOGLOBULIN G
     Dosage: 22 GRAM, 1/WEEK
  14. CIPRO [Concomitant]
     Active Substance: CIPROFLOXACIN HYDROCHLORIDE
  15. MOVANTIK [Concomitant]
     Active Substance: NALOXEGOL OXALATE
  16. DOMPERIDONE [Concomitant]
     Active Substance: DOMPERIDONE
  17. HYDROMORPHONE [Concomitant]
     Active Substance: HYDROMORPHONE
  18. TYLENOL [Concomitant]
     Active Substance: ACETAMINOPHEN
  19. BACLOFEN [Concomitant]
     Active Substance: BACLOFEN
  20. BISOPROLOL [Concomitant]
     Active Substance: BISOPROLOL
  21. SUDAFED [Concomitant]
     Active Substance: PSEUDOEPHEDRINE HYDROCHLORIDE
  22. VITAMINS [Concomitant]
     Active Substance: VITAMINS
  23. COLACE [Concomitant]
     Active Substance: DOCUSATE SODIUM
  24. GRAVOL [Concomitant]
     Active Substance: DIMENHYDRINATE
  25. ROSUVASTATIN [Concomitant]
     Active Substance: ROSUVASTATIN
  26. FERROUS GLUCONATE [Concomitant]
     Active Substance: FERROUS GLUCONATE
  27. LOPERAMIDE [Concomitant]
     Active Substance: LOPERAMIDE
  28. ALLOPURINOL [Concomitant]
     Active Substance: ALLOPURINOL
  29. LORAZEPAM [Concomitant]
     Active Substance: LORAZEPAM
  30. HYDROMORPHONE [Concomitant]
     Active Substance: HYDROMORPHONE
  31. POLYETHYLENE GLYCOL 3350 [Concomitant]
     Active Substance: POLYETHYLENE GLYCOL 3350
  32. LACTULOSE [Concomitant]
     Active Substance: LACTULOSE
  33. TOBRAMYCIN [Concomitant]
     Active Substance: TOBRAMYCIN
  34. B12 [Concomitant]
  35. D [Concomitant]
  36. PREDNISONE [Concomitant]
     Active Substance: PREDNISONE

REACTIONS (22)
  - Guillain-Barre syndrome [Not Recovered/Not Resolved]
  - Paralysis [Unknown]
  - Endocarditis staphylococcal [Not Recovered/Not Resolved]
  - Fall [Recovered/Resolved]
  - Arthritis [Not Recovered/Not Resolved]
  - Heart rate increased [Unknown]
  - Amnesia [Unknown]
  - Muscular weakness [Not Recovered/Not Resolved]
  - Acute kidney injury [Recovered/Resolved]
  - Cerebrovascular accident [Unknown]
  - Myocardial infarction [Unknown]
  - Gait inability [Not Recovered/Not Resolved]
  - Blood pressure decreased [Unknown]
  - Illness [Unknown]
  - Macule [Recovering/Resolving]
  - Product use complaint [Unknown]
  - Chest discomfort [Not Recovered/Not Resolved]
  - Inflammation [Unknown]
  - Blood creatine phosphokinase decreased [Unknown]
  - Spinal pain [Unknown]
  - Off label use [Unknown]
  - Arthralgia [Recovered/Resolved]

NARRATIVE: CASE EVENT DATE: 20231019
